FAERS Safety Report 11746063 (Version 3)
Quarter: 2015Q4

REPORT INFORMATION
  Report Type: Spontaneous
  Country: IQ (occurrence: IQ)
  Receive Date: 20151117
  Receipt Date: 20151202
  Transmission Date: 20160304
  Serious: Yes (Death, Other)
  Sender: FDA-Public Use
  Company Number: PHHY2015IQ149607

PATIENT
  Age: 21 Year
  Sex: Male

DRUGS (12)
  1. CYCLOPHOSPHAMIDE. [Suspect]
     Active Substance: CYCLOPHOSPHAMIDE
     Indication: CHRONIC MYELOID LEUKAEMIA
     Dosage: 1250 MG, QD
     Route: 065
  2. L ASPARAGINASE [Suspect]
     Active Substance: ASPARAGINASE
     Indication: ACUTE LYMPHOCYTIC LEUKAEMIA
  3. VINCRISTIN [Suspect]
     Active Substance: VINCRISTINE
     Indication: CHRONIC MYELOID LEUKAEMIA
     Dosage: 2 MG, QD
     Route: 042
  4. DOXORUBICIN [Suspect]
     Active Substance: DOXORUBICIN
     Indication: CHRONIC MYELOID LEUKAEMIA
     Dosage: 48 MG, QD
     Route: 065
  5. DOXORUBICIN [Suspect]
     Active Substance: DOXORUBICIN
     Indication: ACUTE LYMPHOCYTIC LEUKAEMIA
  6. TASIGNA [Suspect]
     Active Substance: NILOTINIB
     Indication: CHRONIC MYELOID LEUKAEMIA
     Dosage: 200 MG, QD (DAILY)
     Route: 048
     Dates: start: 20150901, end: 20151016
  7. VINCRISTIN [Suspect]
     Active Substance: VINCRISTINE
     Indication: ACUTE LYMPHOCYTIC LEUKAEMIA
  8. AMIKACIN [Concomitant]
     Active Substance: AMIKACIN
     Indication: FEBRILE NEUTROPENIA
     Dosage: 500 OT, BID
     Route: 042
  9. ALLOPURINOL. [Concomitant]
     Active Substance: ALLOPURINOL
     Indication: TUMOUR LYSIS SYNDROME
     Dosage: 300 MG, QD
     Route: 048
  10. CYCLOPHOSPHAMIDE. [Suspect]
     Active Substance: CYCLOPHOSPHAMIDE
     Indication: ACUTE LYMPHOCYTIC LEUKAEMIA
  11. L ASPARAGINASE [Suspect]
     Active Substance: ASPARAGINASE
     Indication: CHRONIC MYELOID LEUKAEMIA
     Dosage: 10000 IU, QD
     Route: 065
  12. CEFTAZIDIME. [Concomitant]
     Active Substance: CEFTAZIDIME
     Indication: FEBRILE NEUTROPENIA
     Dosage: 1 G, TID
     Route: 042

REACTIONS (9)
  - Apnoea [Unknown]
  - Cyanosis [Unknown]
  - Loss of consciousness [Unknown]
  - Death [Fatal]
  - Blast cell crisis [Unknown]
  - Hypoxia [Unknown]
  - Dyspnoea [Unknown]
  - Pancytopenia [Unknown]
  - Bradycardia [Unknown]

NARRATIVE: CASE EVENT DATE: 20151016
